FAERS Safety Report 9708778 (Version 1)
Quarter: 2013Q4

REPORT INFORMATION
  Report Type: Other
  Country: FR (occurrence: FR)
  Receive Date: 20131125
  Receipt Date: 20131125
  Transmission Date: 20140711
  Serious: Yes (Other)
  Sender: FDA-Public Use
  Company Number: FR-BRISTOL-MYERS SQUIBB COMPANY-19811009

PATIENT
  Age: 32 Year
  Sex: Female
  Weight: 60 kg

DRUGS (1)
  1. METFORMIN HCL [Suspect]

REACTIONS (7)
  - Amniotic cavity infection [Unknown]
  - Gestational diabetes [Unknown]
  - Abortion spontaneous [Recovered/Resolved]
  - Premature rupture of membranes [Unknown]
  - Cervical incompetence [Unknown]
  - Radiculitis [Unknown]
  - Pregnancy [Recovered/Resolved]
